FAERS Safety Report 26000488 (Version 1)
Quarter: 2025Q4

REPORT INFORMATION
  Report Type: Spontaneous
  Country: US (occurrence: US)
  Receive Date: 20251105
  Receipt Date: 20251105
  Transmission Date: 20260118
  Serious: No
  Sender: ANI
  Company Number: US-ANIPHARMA-2025-US-039787

PATIENT
  Age: 60 Year
  Sex: Male

DRUGS (13)
  1. CORTICOTROPIN [Suspect]
     Active Substance: CORTICOTROPIN
     Indication: Nephrotic syndrome
     Dosage: 40 UNITS TWICE WEEKLY
     Route: 058
  2. JARDIANCE [Concomitant]
     Active Substance: EMPAGLIFLOZIN
  3. LEVOTHYROXINE SODIUM [Concomitant]
     Active Substance: LEVOTHYROXINE SODIUM
  4. MOUNJARO [Concomitant]
     Active Substance: TIRZEPATIDE
  5. NITROGLYCERIN TRANSDERMAL [Concomitant]
  6. ASPIRIN [Concomitant]
     Active Substance: ASPIRIN
  7. REPATHA [Concomitant]
     Active Substance: EVOLOCUMAB
  8. ATORVASTATIN CALCIUM [Concomitant]
     Active Substance: ATORVASTATIN CALCIUM
  9. OMEGA 3 [Concomitant]
     Active Substance: CAPSAICIN
  10. BUMETANIDE [Concomitant]
     Active Substance: BUMETANIDE
  11. ENALAPRIL MALEATE [Concomitant]
     Active Substance: ENALAPRIL MALEATE
  12. FUROSEMIDE [Concomitant]
     Active Substance: FUROSEMIDE
  13. ERGOCALCIFEROL [Concomitant]
     Active Substance: ERGOCALCIFEROL

REACTIONS (1)
  - Arthralgia [Unknown]
